FAERS Safety Report 22386549 (Version 1)
Quarter: 2023Q2

REPORT INFORMATION
  Report Type: Spontaneous
  Country: DE (occurrence: DE)
  Receive Date: 20230531
  Receipt Date: 20230531
  Transmission Date: 20230722
  Serious: Yes (Hospitalization, Congenital Anomaly, Other)
  Sender: FDA-Public Use
  Company Number: DE-EMBRYOTOX-202209565

PATIENT
  Sex: Male
  Weight: 2.56 kg

DRUGS (3)
  1. LEVETIRACETAM [Suspect]
     Active Substance: LEVETIRACETAM
     Indication: Epilepsy
     Dosage: 3000 [MG/D ]/ INITIAL 2X750MG DAILY, INCREASED TO 2X1500MG DAILY
     Route: 064
     Dates: start: 20220203, end: 20221008
  2. AMOXICILLIN [Concomitant]
     Active Substance: AMOXICILLIN
     Indication: Infection prophylaxis
     Dosage: 2000 [MG/D (2X1000)]
     Route: 064
  3. LEVOTHYROXINE [Concomitant]
     Active Substance: LEVOTHYROXINE
     Indication: Hypothyroidism
     Dosage: 50 (UG/D)
     Route: 064
     Dates: start: 20220203, end: 20221008

REACTIONS (6)
  - Pericardial effusion [Unknown]
  - Urethral atresia [Not Recovered/Not Resolved]
  - Cardiac hypertrophy [Unknown]
  - Foetal megacystis [Recovered/Resolved]
  - Vesicoureteric reflux [Not Recovered/Not Resolved]
  - Foetal exposure during pregnancy [Unknown]
